FAERS Safety Report 25243482 (Version 2)
Quarter: 2025Q2

REPORT INFORMATION
  Report Type: Spontaneous
  Country: ES (occurrence: ES)
  Receive Date: 20250428
  Receipt Date: 20250509
  Transmission Date: 20250716
  Serious: Yes (Death, Hospitalization)
  Sender: TEVA
  Company Number: ES-TEVA-VS-3324913

PATIENT
  Age: 54 Year
  Sex: Male

DRUGS (1)
  1. TENOFOVIR [Suspect]
     Active Substance: TENOFOVIR
     Indication: Hepatitis B e antigen negative
     Route: 065
     Dates: start: 2012

REACTIONS (4)
  - Drug ineffective [Fatal]
  - Acute hepatitis B [Unknown]
  - Hepatitis B reactivation [Unknown]
  - Rebound effect [Unknown]
